FAERS Safety Report 21974323 (Version 1)
Quarter: 2023Q1

REPORT INFORMATION
  Report Type: Spontaneous
  Country: US (occurrence: US)
  Receive Date: 20230209
  Receipt Date: 20230209
  Transmission Date: 20230418
  Serious: Yes (Death, Hospitalization)
  Sender: FDA-Public Use
  Company Number: US-TEVA-2023-US-2852645

PATIENT
  Age: 42 Year
  Sex: Female

DRUGS (8)
  1. ETOPOSIDE [Suspect]
     Active Substance: ETOPOSIDE
     Indication: Hepatosplenic T-cell lymphoma
     Dosage: 6 CYCLES; DA-EPOCH REGIMEN AT DOSE LEVEL +1
     Route: 065
  2. PREDNISONE [Suspect]
     Active Substance: PREDNISONE
     Indication: Hepatosplenic T-cell lymphoma
     Dosage: 6 CYCLES; DA-EPOCH REGIMEN AT DOSE LEVEL +1
     Route: 065
  3. DOXORUBICIN [Suspect]
     Active Substance: DOXORUBICIN
     Indication: Hepatosplenic T-cell lymphoma
     Dosage: 6 CYCLES; DA-EPOCH REGIMEN AT DOSE LEVEL +1
     Route: 065
  4. VINCRISTINE [Suspect]
     Active Substance: VINCRISTINE
     Indication: Hepatosplenic T-cell lymphoma
     Dosage: 6 CYCLES; DA-EPOCH REGIMEN AT DOSE LEVEL +1
     Route: 065
  5. ROMIDEPSIN [Suspect]
     Active Substance: ROMIDEPSIN
     Indication: Hepatosplenic T-cell lymphoma
     Dosage: FOR 2 WEEKS (ON DAY 1 TO 15) OF A 28 DAYS TREATMENT CYCLE
     Route: 065
  6. PRALATREXATE [Suspect]
     Active Substance: PRALATREXATE
     Indication: Hepatosplenic T-cell lymphoma
     Dosage: 10-20-30 MG/M2; 4 DOSES
     Route: 065
  7. PRALATREXATE [Suspect]
     Active Substance: PRALATREXATE
     Dosage: FOR 2 WEEKS (ON DAY 1 TO 15) OF A 28 DAYS TREATMENT CYCLE
     Route: 065
  8. CYCLOPHOSPHAMIDE [Suspect]
     Active Substance: CYCLOPHOSPHAMIDE
     Indication: Hepatosplenic T-cell lymphoma
     Dosage: 6 CYCLES; DA-EPOCH REGIMEN AT DOSE LEVEL +1
     Route: 065

REACTIONS (2)
  - Drug ineffective [Fatal]
  - Febrile neutropenia [Unknown]
